FAERS Safety Report 19241941 (Version 9)
Quarter: 2021Q2

REPORT INFORMATION
  Report Type: Report from Study
  Country: GB (occurrence: GB)
  Receive Date: 20210510
  Receipt Date: 20210624
  Transmission Date: 20210717
  Serious: Yes (Congenital Anomaly, Other)
  Sender: FDA-Public Use
  Company Number: GB-MYLANLABS-2021M1027083

PATIENT
  Sex: Female
  Weight: 2.5 kg

DRUGS (11)
  1. ABACAVIR SULFATE/LAMIVUDINE [Suspect]
     Active Substance: ABACAVIR SULFATE\LAMIVUDINE
     Indication: HIV INFECTION
     Dosage: 1 DOSAGE FORM, QD
     Route: 064
     Dates: start: 20200601, end: 20200801
  2. EMTRICITABINE + TENOFOVIR DISOPROXIL FUMARATE [Suspect]
     Active Substance: EMTRICITABINE\TENOFOVIR DISOPROXIL FUMARATE
     Dosage: 1 DOSAGE FORM, QD
     Route: 064
     Dates: start: 20200801
  3. ISENTRESS [Suspect]
     Active Substance: RALTEGRAVIR POTASSIUM
     Indication: HIV INFECTION
     Dosage: 1 DOSAGE FORM, QD
     Route: 064
     Dates: start: 20200801
  4. REYATAZ [Suspect]
     Active Substance: ATAZANAVIR SULFATE
     Indication: HIV INFECTION
     Dosage: 1 DF (TABLET), QD
     Route: 064
     Dates: start: 20200601, end: 20200801
  5. RITONAVIR. [Suspect]
     Active Substance: RITONAVIR
     Indication: HIV INFECTION
     Dosage: 1 DF (TABLET), QD
     Route: 064
     Dates: start: 20200601, end: 20200801
  6. DESCOVY [Suspect]
     Active Substance: EMTRICITABINE\TENOFOVIR ALAFENAMIDE FUMARATE
     Indication: HIV INFECTION
     Dosage: 1 DOSAGE FORM
     Route: 064
  7. TRUVADA [Suspect]
     Active Substance: EMTRICITABINE\TENOFOVIR DISOPROXIL FUMARATE
     Indication: HIV INFECTION
     Dosage: 1 DOSAGE FORM
     Route: 064
     Dates: start: 20200801
  8. TRUVADA [Suspect]
     Active Substance: EMTRICITABINE\TENOFOVIR DISOPROXIL FUMARATE
     Dosage: 1 DF (TABLET), QD
     Route: 064
     Dates: start: 20200801
  9. EMTRICITABINE + TENOFOVIR DISOPROXIL FUMARATE [Suspect]
     Active Substance: EMTRICITABINE\TENOFOVIR DISOPROXIL FUMARATE
     Dosage: 1 DOSAGE FORM
     Route: 064
  10. DESCOVY [Suspect]
     Active Substance: EMTRICITABINE\TENOFOVIR ALAFENAMIDE FUMARATE
     Dosage: 1 DF (TABLET), QD
     Route: 064
     Dates: end: 20200601
  11. EMTRICITABINE + TENOFOVIR DISOPROXIL FUMARATE [Suspect]
     Active Substance: EMTRICITABINE\TENOFOVIR DISOPROXIL FUMARATE
     Indication: HIV INFECTION
     Dosage: 1 DOSAGE FORM, QD
     Route: 064
     Dates: end: 20200601

REACTIONS (4)
  - Spina bifida [Not Recovered/Not Resolved]
  - Hydrocephalus [Not Recovered/Not Resolved]
  - Foetal exposure during pregnancy [Recovered/Resolved]
  - Premature baby [Recovered/Resolved]

NARRATIVE: CASE EVENT DATE: 2020
